FAERS Safety Report 5195744-0 (Version None)
Quarter: 2007Q1

REPORT INFORMATION
  Report Type: 
  Country: None (occurrence: None)
  Receive Date: 20070102
  Receipt Date: 20061221
  Transmission Date: 20070707
  Serious: Yes (Disabling)
  Sender: FDA-Public Use
  Company Number: 2006SE05228

PATIENT
  Age: 496 Month
  Sex: Female

DRUGS (5)
  1. ATACAND [Suspect]
     Indication: MIGRAINE PROPHYLAXIS
     Route: 048
     Dates: start: 20040617, end: 20060715
  2. ELTROXIN [Concomitant]
  3. KODEIN [Concomitant]
  4. PANODIL [Concomitant]
  5. MIGEA [Concomitant]

REACTIONS (4)
  - DYSPHONIA [None]
  - LARYNGEAL OEDEMA [None]
  - OEDEMA PERIPHERAL [None]
  - PHARYNGOLARYNGEAL PAIN [None]
